FAERS Safety Report 10178447 (Version 1)
Quarter: 2014Q2

REPORT INFORMATION
  Report Type: Spontaneous
  Country: US (occurrence: None)
  Receive Date: 20140516
  Receipt Date: 20140516
  Transmission Date: 20141212
  Serious: Yes (Hospitalization)
  Sender: FDA-Public Use
  Company Number: None

PATIENT
  Sex: Male

DRUGS (5)
  1. XARELTO [Suspect]
     Indication: PRODUCT USED FOR UNKNOWN INDICATION
     Route: 048
     Dates: start: 20140417
  2. MELOXICAM [Concomitant]
  3. ZOFRAN [Concomitant]
  4. COMPAZINE [Concomitant]
  5. CHEMOTHERAPY [Concomitant]

REACTIONS (5)
  - Vomiting [None]
  - Asthenia [None]
  - Hypophagia [None]
  - Hypersomnia [None]
  - Asthenia [None]
